FAERS Safety Report 7358624-8 (Version None)
Quarter: 2011Q1

REPORT INFORMATION
  Report Type: 
  Country: None (occurrence: None)
  Receive Date: 20110317
  Receipt Date: 20110302
  Transmission Date: 20110831
  Serious: Yes (Death, Other)
  Sender: FDA-Public Use
  Company Number: JP-BAYER-2010-000574

PATIENT
  Sex: Male
  Weight: 56 kg

DRUGS (11)
  1. LIVACT [Concomitant]
     Dosage: 3 DF, QD
     Route: 048
  2. BESACOLIN [Concomitant]
     Dosage: 2 DF, QD
     Route: 048
  3. LUPRAC [Concomitant]
     Dosage: 4 MG, UNK
     Dates: start: 20100310
  4. NEXAVAR [Suspect]
     Indication: HEPATIC NEOPLASM MALIGNANT
     Dosage: 800 MG, QD
     Route: 048
     Dates: start: 20100304, end: 20100323
  5. ADALAT [Concomitant]
     Dosage: 20 MG, QD
     Route: 048
  6. SILODOSIN [Concomitant]
     Dosage: 8 MG, QD
     Route: 048
  7. EVIPROSTAT [Concomitant]
     Dosage: 2 DF, QD
     Route: 048
  8. LASIX [Concomitant]
     Indication: ASCITES
     Dosage: DAILY DOSE 40 MG
     Route: 048
     Dates: start: 20100330
  9. CISPLATIN [Concomitant]
     Indication: REGIONAL CHEMOTHERAPY
     Dosage: UNK
     Route: 042
     Dates: start: 20100304, end: 20100304
  10. MYSLEE [Concomitant]
     Indication: INSOMNIA
     Dosage: 5 MG, PRN
     Route: 048
     Dates: start: 20100306, end: 20100311
  11. ALDACTONE [Concomitant]
     Indication: ASCITES
     Dosage: DAILY DOSE 50 MG
     Route: 048
     Dates: start: 20100330

REACTIONS (11)
  - BLOOD AMYLASE INCREASED [None]
  - NAUSEA [None]
  - DECREASED APPETITE [None]
  - DIARRHOEA [None]
  - PALMAR-PLANTAR ERYTHRODYSAESTHESIA SYNDROME [None]
  - ASPARTATE AMINOTRANSFERASE INCREASED [None]
  - FATIGUE [None]
  - STOMATITIS [None]
  - ASCITES [None]
  - HEPATIC NEOPLASM MALIGNANT [None]
  - LIPASE INCREASED [None]
